FAERS Safety Report 11235251 (Version 1)
Quarter: 2015Q3

REPORT INFORMATION
  Report Type: Spontaneous
  Country: IN (occurrence: IN)
  Receive Date: 20150702
  Receipt Date: 20150702
  Transmission Date: 20151125
  Serious: Yes (Hospitalization)
  Sender: FDA-Public Use
  Company Number: PHHY2015IN075612

PATIENT
  Age: 74 Year
  Sex: Male

DRUGS (8)
  1. PIPERACILLIN AND TAZOBACTAM [Concomitant]
     Active Substance: PIPERACILLIN SODIUM\TAZOBACTAM SODIUM
     Indication: OBSTRUCTIVE AIRWAYS DISORDER
  2. CLOPIDOGREL [Concomitant]
     Active Substance: CLOPIDOGREL BISULFATE
     Indication: PRODUCT USED FOR UNKNOWN INDICATION
     Dosage: 75 MG, QD
     Route: 065
  3. PIPERACILLIN AND TAZOBACTAM [Concomitant]
     Active Substance: PIPERACILLIN SODIUM\TAZOBACTAM SODIUM
     Indication: PNEUMONIA
     Route: 065
  4. RANOLAZINE [Interacting]
     Active Substance: RANOLAZINE
     Indication: ANGINAL EQUIVALENT
     Dosage: 500 MG, QD
     Route: 065
  5. CLARITHROMYCIN. [Interacting]
     Active Substance: CLARITHROMYCIN
     Indication: PNEUMONIA
  6. ATORVASTATIN [Concomitant]
     Active Substance: ATORVASTATIN
     Indication: PRODUCT USED FOR UNKNOWN INDICATION
     Dosage: 20 MG, QD
     Route: 065
  7. ISOSORBIDE MONONITRATE. [Concomitant]
     Active Substance: ISOSORBIDE MONONITRATE
     Indication: PRODUCT USED FOR UNKNOWN INDICATION
     Dosage: 30 MG, QD
     Route: 065
  8. CLARITHROMYCIN. [Suspect]
     Active Substance: CLARITHROMYCIN
     Indication: OBSTRUCTIVE AIRWAYS DISORDER
     Route: 065

REACTIONS (6)
  - Cerebellar syndrome [Recovered/Resolved]
  - Dysarthria [Recovered/Resolved]
  - Hallucination [Recovered/Resolved]
  - Drug interaction [Recovered/Resolved]
  - Ataxia [Recovered/Resolved]
  - Confusional state [Recovered/Resolved]
